FAERS Safety Report 25831389 (Version 1)
Quarter: 2025Q3

REPORT INFORMATION
  Report Type: Spontaneous
  Country: US (occurrence: US)
  Receive Date: 20250922
  Receipt Date: 20250922
  Transmission Date: 20251020
  Serious: Yes (Other)
  Sender: INCYTE
  Company Number: US-INCYTE CORPORATION-2025IN010206

PATIENT

DRUGS (2)
  1. JAKAFI [Suspect]
     Active Substance: RUXOLITINIB
     Indication: Polycythaemia vera
     Dosage: 10 MILLIGRAM, BID
  2. JAKAFI [Suspect]
     Active Substance: RUXOLITINIB
     Indication: Myelofibrosis

REACTIONS (4)
  - Polycythaemia vera [Unknown]
  - Myelofibrosis [Unknown]
  - Insurance issue [Unknown]
  - Condition aggravated [Unknown]
